FAERS Safety Report 5460905-X (Version None)
Quarter: 2007Q3

REPORT INFORMATION
  Report Type: 
  Country: None (occurrence: None)
  Receive Date: 20070827
  Receipt Date: 20061106
  Transmission Date: 20080115
  Serious: Yes (Other)
  Sender: FDA-Public Use
  Company Number: 2006135859

PATIENT

DRUGS (1)
  1. VORICONAZOLE (VORICONAZOLE) [Suspect]

REACTIONS (1)
  - RASH ERYTHEMATOUS [None]
